FAERS Safety Report 8061452-1 (Version None)
Quarter: 2012Q1

REPORT INFORMATION
  Report Type: 
  Country: None (occurrence: None)
  Receive Date: 20120120
  Receipt Date: 20111111
  Transmission Date: 20120608
  Serious: No
  Sender: FDA-Public Use
  Company Number: US-ALLERGAN-1114883US

PATIENT
  Age: 81 Year
  Sex: Male

DRUGS (3)
  1. RESTASIS [Suspect]
     Indication: DRY EYE
     Dosage: 2 GTT, BID
     Route: 047
     Dates: start: 20110901, end: 20111109
  2. HYPOTEARS DDPF [Concomitant]
     Indication: PRODUCT USED FOR UNKNOWN INDICATION
  3. SYSTANE LIQUID GEL [Concomitant]
     Indication: PRODUCT USED FOR UNKNOWN INDICATION

REACTIONS (1)
  - EYE IRRITATION [None]
